FAERS Safety Report 5278766-0 (Version None)
Quarter: 2007Q1

REPORT INFORMATION
  Report Type: 
  Country: None (occurrence: None)
  Receive Date: 20061213
  Receipt Date: 20050429
  Transmission Date: 20070707
  Serious: Yes (Hospitalization)
  Sender: FDA-Public Use
  Company Number: 2005UW06698

PATIENT
  Age: 47 Year
  Sex: Female

DRUGS (1)
  1. SEROQUEL [Suspect]
     Dosage: 300 - 600 MG

REACTIONS (3)
  - ASTHENIA [None]
  - DRUG TOXICITY [None]
  - DYSARTHRIA [None]
